FAERS Safety Report 20579993 (Version 2)
Quarter: 2022Q1

REPORT INFORMATION
  Report Type: Spontaneous
  Country: US (occurrence: US)
  Receive Date: 20220310
  Receipt Date: 20220328
  Transmission Date: 20220424
  Serious: Yes (Life-Threatening, Hospitalization, Other)
  Sender: FDA-Public Use
  Company Number: US-MLMSERVICE-20220224-3394086-1

PATIENT
  Age: 70 Year
  Sex: Female

DRUGS (1)
  1. DEXAMETHASONE [Suspect]
     Active Substance: DEXAMETHASONE
     Indication: Back pain
     Dosage: UNK
     Route: 065

REACTIONS (6)
  - Coronary artery stenosis [Recovering/Resolving]
  - Hyperglycaemia [Recovering/Resolving]
  - Acute myocardial infarction [Recovering/Resolving]
  - Left ventricular hypertrophy [Recovering/Resolving]
  - Neck pain [Unknown]
  - Palpitations [Unknown]
